FAERS Safety Report 7520510-8 (Version None)
Quarter: 2011Q2

REPORT INFORMATION
  Report Type: 
  Country: None (occurrence: None)
  Receive Date: 20110602
  Receipt Date: 20110519
  Transmission Date: 20111010
  Serious: Yes (Hospitalization, Other)
  Sender: FDA-Public Use
  Company Number: US-ELI_LILLY_AND_COMPANY-US201105006118

PATIENT
  Age: 64 Year
  Sex: Female

DRUGS (6)
  1. CALCIUM CARBONATE [Concomitant]
  2. PULMICORT [Concomitant]
  3. XANAX [Concomitant]
  4. FORTEO [Suspect]
     Indication: OSTEOPOROSIS
     Dosage: 20 UG, QD
     Route: 065
     Dates: start: 20110101, end: 20110412
  5. VITAMIN D [Concomitant]
  6. COUMADIN [Concomitant]
     Dosage: UNK
     Dates: end: 20110412

REACTIONS (1)
  - HIP ARTHROPLASTY [None]
